FAERS Safety Report 4266727-X (Version None)
Quarter: 2004Q1

REPORT INFORMATION
  Report Type: 
  Country: None (occurrence: None)
  Receive Date: 20040108
  Receipt Date: 20030822
  Transmission Date: 20041129
  Serious: Yes (Hospitalization, Other)
  Sender: FDA-Public Use
  Company Number: US-GLAXOSMITHKLINE-A0423124A

PATIENT
  Age: 44 Year
  Sex: Male
  Weight: 109.1 kg

DRUGS (1)
  1. AUGMENTIN '125' [Suspect]
     Indication: ACUTE SINUSITIS
     Dosage: 2TAB TWICE PER DAY
     Route: 048

REACTIONS (1)
  - VASCULITIS [None]
